FAERS Safety Report 4316266-2 (Version None)
Quarter: 2004Q1

REPORT INFORMATION
  Report Type: 
  Country: None (occurrence: None)
  Receive Date: 20040310
  Receipt Date: 20030429
  Transmission Date: 20041129
  Serious: Yes (Other)
  Sender: FDA-Public Use
  Company Number: HQ2859618JUN2002

PATIENT
  Age: 40 Year
  Sex: Male
  Weight: 86.26 kg

DRUGS (2)
  1. PROTONIX [Suspect]
     Indication: GASTROOESOPHAGEAL REFLUX DISEASE
     Dosage: ORAL
     Route: 048
     Dates: start: 20010301, end: 20010601
  2. ADVIL [Concomitant]

REACTIONS (1)
  - SLEEP APNOEA SYNDROME [None]
